FAERS Safety Report 8524026-1 (Version None)
Quarter: 2012Q3

REPORT INFORMATION
  Report Type: 
  Country: None (occurrence: None)
  Receive Date: 20120720
  Receipt Date: 20120711
  Transmission Date: 20120928
  Serious: Yes (Hospitalization)
  Sender: FDA-Public Use
  Company Number: US-SANOFI-AVENTIS-2012SA049657

PATIENT
  Age: 67 Year
  Sex: Male
  Weight: 148 kg

DRUGS (14)
  1. TAXOTERE [Suspect]
     Indication: PROSTATE CANCER
     Route: 042
     Dates: start: 20111121, end: 20111121
  2. BLINDED THERAPY [Suspect]
     Indication: PROSTATE CANCER
     Route: 042
     Dates: start: 20111114
  3. ATENOLOL [Concomitant]
  4. OMEPRAZOLE [Concomitant]
  5. ACETYLSALICYLIC ACID SRT [Concomitant]
  6. ACETAMINOPHEN [Concomitant]
  7. OXYCODONE HCL [Concomitant]
  8. DEXAMETHASONE [Concomitant]
  9. HYDROCHLOROTHIAZIDE [Concomitant]
  10. IBUPROFEN [Concomitant]
  11. PRAVASTATIN [Concomitant]
  12. MULTI-VITAMINS [Concomitant]
  13. PREDNISONE [Concomitant]
  14. PROCHLORPERAZINE [Concomitant]

REACTIONS (1)
  - HYPONATRAEMIA [None]
